FAERS Safety Report 9888252 (Version 1)
Quarter: 2014Q1

REPORT INFORMATION
  Report Type: Spontaneous
  Country: JP (occurrence: None)
  Receive Date: 20140207
  Receipt Date: 20140207
  Transmission Date: 20141002
  Serious: Yes (Hospitalization)
  Sender: FDA-Public Use
  Company Number: SYM-2014-16371

PATIENT
  Age: 47 Year
  Sex: Male

DRUGS (1)
  1. CHOREAZINE [Suspect]
     Indication: HUNTINGTON^S DISEASE
     Route: 048
     Dates: start: 20130801, end: 20131120

REACTIONS (1)
  - Pneumonia [None]
